FAERS Safety Report 11645568 (Version 1)
Quarter: 2015Q4

REPORT INFORMATION
  Report Type: Spontaneous
  Country: DK (occurrence: DK)
  Receive Date: 20151020
  Receipt Date: 20151020
  Transmission Date: 20160304
  Serious: Yes (Hospitalization)
  Sender: FDA-Public Use
  Company Number: DK-PFIZER INC-2015346216

PATIENT
  Age: 77 Year
  Sex: Male

DRUGS (6)
  1. HJERTEMAGNYL /00228701/ [Concomitant]
     Active Substance: ASPIRIN\MAGNESIUM OXIDE
     Indication: PROPHYLAXIS
     Dosage: UNK
  2. ZARATOR [Suspect]
     Active Substance: ATORVASTATIN CALCIUM
     Indication: HYPERCHOLESTEROLAEMIA
     Dosage: 80 MG, 1X/DAY
     Route: 048
     Dates: end: 20150914
  3. TESTOSTERON ^PARANOVA^ [Concomitant]
     Indication: PITUITARY TUMOUR BENIGN
     Dosage: UNK
  4. ELTROXIN [Concomitant]
     Active Substance: LEVOTHYROXINE
     Indication: PITUITARY TUMOUR BENIGN
     Dosage: UNK
  5. OMNIC [Concomitant]
     Active Substance: TAMSULOSIN HYDROCHLORIDE
     Indication: BENIGN PROSTATIC HYPERPLASIA
     Dosage: UNK
  6. HYDROCORTISONE. [Concomitant]
     Active Substance: HYDROCORTISONE
     Indication: PITUITARY TUMOUR BENIGN
     Dosage: UNK

REACTIONS (3)
  - Dyspnoea [Unknown]
  - Blood creatine phosphokinase increased [Recovering/Resolving]
  - Pulmonary vascular disorder [Unknown]

NARRATIVE: CASE EVENT DATE: 201509
